FAERS Safety Report 5830268-6 (Version None)
Quarter: 2008Q3

REPORT INFORMATION
  Report Type: 
  Country: None (occurrence: None)
  Receive Date: 20080801
  Receipt Date: 20080717
  Transmission Date: 20090109
  Serious: Yes (Other)
  Sender: FDA-Public Use
  Company Number: DE-GENENTECH-265164

PATIENT
  Age: 45 Year
  Sex: Female

DRUGS (4)
  1. AVASTIN [Suspect]
     Indication: ADENOCARCINOMA
     Dosage: UNK
     Dates: start: 20070101
  2. FLUOROURACIL [Concomitant]
     Indication: ADENOCARCINOMA
  3. FOLINIC ACID [Concomitant]
     Indication: ADENOCARCINOMA
  4. OXALIPLATIN [Concomitant]
     Indication: ADENOCARCINOMA

REACTIONS (1)
  - BLADDER NECROSIS [None]
